FAERS Safety Report 8185473-3 (Version None)
Quarter: 2012Q1

REPORT INFORMATION
  Report Type: 
  Country: None (occurrence: None)
  Receive Date: 20120305
  Receipt Date: 20120227
  Transmission Date: 20120608
  Serious: Yes (Other)
  Sender: FDA-Public Use
  Company Number: US-PFIZER INC-2012052597

PATIENT
  Sex: Female

DRUGS (1)
  1. AZULFIDINE [Suspect]
     Indication: ARTHRITIS
     Dosage: UNK

REACTIONS (1)
  - ACCIDENT AT WORK [None]
